FAERS Safety Report 7859259-0 (Version None)
Quarter: 2011Q4

REPORT INFORMATION
  Report Type: 
  Country: None (occurrence: None)
  Receive Date: 20111027
  Receipt Date: 20111027
  Transmission Date: 20120403
  Serious: Yes (Life-Threatening, Other)
  Sender: FDA-Public Use
  Company Number: None

PATIENT
  Age: 80 Year
  Sex: Male
  Weight: 80.739 kg

DRUGS (1)
  1. PRAVASTATIN [Suspect]
     Indication: BLOOD CHOLESTEROL
     Dosage: ONE TAB
     Route: 048
     Dates: start: 20110101, end: 20110601

REACTIONS (4)
  - BLINDNESS UNILATERAL [None]
  - MYELODYSPLASTIC SYNDROME [None]
  - MUSCLE SPASMS [None]
  - VISION BLURRED [None]
